FAERS Safety Report 5493989-3 (Version None)
Quarter: 2007Q4

REPORT INFORMATION
  Report Type: 
  Country: None (occurrence: None)
  Receive Date: 20071023
  Receipt Date: 20071011
  Transmission Date: 20080405
  Serious: Yes (Hospitalization)
  Sender: FDA-Public Use
  Company Number: CH-PFIZER INC-2007085892

PATIENT
  Sex: Female
  Weight: 80 kg

DRUGS (5)
  1. SU-011,248 [Suspect]
     Route: 048
  2. MARCUMAR [Concomitant]
     Route: 048
  3. ELTROXIN [Concomitant]
     Route: 048
  4. ATENOLOL [Concomitant]
     Route: 048
  5. COMILORIDE [Concomitant]
     Route: 048

REACTIONS (1)
  - CIRCULATORY COLLAPSE [None]
